FAERS Safety Report 8122223-0 (Version None)
Quarter: 2012Q1

REPORT INFORMATION
  Report Type: 
  Country: None (occurrence: None)
  Receive Date: 20120208
  Receipt Date: 20120131
  Transmission Date: 20120608
  Serious: Yes (Other)
  Sender: FDA-Public Use
  Company Number: PT-JNJFOC-20120202598

PATIENT
  Age: 58 Year
  Sex: Male

DRUGS (11)
  1. RITONAVIR [Suspect]
     Route: 065
  2. DARUNAVIR [Suspect]
     Route: 065
  3. ABACAVIR [Suspect]
     Indication: HIV INFECTION
     Route: 065
  4. DOPAMINE AGONISTS [Suspect]
     Indication: PARKINSON'S DISEASE
     Route: 065
  5. DARUNAVIR [Suspect]
     Indication: HIV INFECTION
     Route: 065
  6. LEVODOPA [Interacting]
     Route: 065
  7. LAMIVUDINE [Suspect]
     Route: 065
  8. ABACAVIR [Suspect]
     Route: 065
  9. LAMIVUDINE [Suspect]
     Indication: HIV INFECTION
     Route: 065
  10. RITONAVIR [Suspect]
     Indication: HIV INFECTION
     Route: 065
  11. LEVODOPA [Interacting]
     Indication: PARKINSON'S DISEASE
     Route: 065

REACTIONS (5)
  - VOMITING [None]
  - DYSKINESIA [None]
  - DIARRHOEA [None]
  - DRUG INTERACTION [None]
  - NAUSEA [None]
